FAERS Safety Report 14499127 (Version 1)
Quarter: 2018Q1

REPORT INFORMATION
  Report Type: Spontaneous
  Country: US (occurrence: US)
  Receive Date: 20180207
  Receipt Date: 20180207
  Transmission Date: 20180509
  Serious: No
  Sender: FDA-Public Use
  Company Number: US-JAZZ-2017-US-010183

PATIENT
  Sex: Male

DRUGS (2)
  1. PRIALT [Suspect]
     Active Substance: ZICONOTIDE ACETATE
     Indication: PAIN
     Dosage: 1.5 ?G, QH
     Route: 037
  2. DILAUDID [Suspect]
     Active Substance: HYDROMORPHONE HYDROCHLORIDE
     Indication: PRODUCT USED FOR UNKNOWN INDICATION

REACTIONS (11)
  - Insomnia [Unknown]
  - Withdrawal syndrome [Unknown]
  - Blood pressure abnormal [Unknown]
  - Arthropathy [Not Recovered/Not Resolved]
  - Fatigue [Unknown]
  - Muscle fatigue [Unknown]
  - Therapeutic response decreased [Not Recovered/Not Resolved]
  - Malaise [Unknown]
  - Peripheral swelling [Not Recovered/Not Resolved]
  - Dyspnoea [Unknown]
  - Feeling abnormal [Unknown]
